FAERS Safety Report 10913673 (Version 2)
Quarter: 2016Q3

REPORT INFORMATION
  Report Type: Spontaneous
  Country: FR (occurrence: FR)
  Receive Date: 20150313
  Receipt Date: 20160712
  Transmission Date: 20161109
  Serious: Yes (Hospitalization, Other)
  Sender: FDA-Public Use
  Company Number: FR-SA-2015SA030070

PATIENT
  Age: 71 Year
  Sex: Female

DRUGS (1)
  1. LEFLUNOMIDE. [Suspect]
     Active Substance: LEFLUNOMIDE
     Route: 048

REACTIONS (9)
  - Pleurisy [Recovering/Resolving]
  - Ascites [Recovering/Resolving]
  - Dyspnoea [Recovering/Resolving]
  - Pleuropericarditis [Recovered/Resolved]
  - Dyspnoea exertional [Recovering/Resolving]
  - Pericardial effusion [Recovering/Resolving]
  - Pericarditis [Recovering/Resolving]
  - Chest pain [Recovering/Resolving]
  - Carbohydrate antigen 125 increased [Recovered/Resolved]
